FAERS Safety Report 18165529 (Version 1)
Quarter: 2020Q3

REPORT INFORMATION
  Report Type: Spontaneous
  Country: US (occurrence: US)
  Receive Date: 20200818
  Receipt Date: 20200818
  Transmission Date: 20201103
  Serious: Yes (Hospitalization, Other)
  Sender: FDA-Public Use
  Company Number: US-ASTRAZENECA-2020SF01296

PATIENT
  Sex: Female
  Weight: 68 kg

DRUGS (5)
  1. FASENRA [Suspect]
     Active Substance: BENRALIZUMAB
     Indication: ECZEMA
     Dosage: THREE FOUR WEEK INJECTIONS, AND THE THE 10TH WOULD HAVE BEEN THE FIRST EIGHT WEEK
     Route: 058
  2. DULERA [Concomitant]
     Active Substance: FORMOTEROL FUMARATE DIHYDRATE\MOMETASONE FUROATE
     Dosage: 200MCG/5MCG TWO PUFFS TWICE A DAY
  3. FASENRA [Suspect]
     Active Substance: BENRALIZUMAB
     Indication: ASTHMA
     Dosage: THREE FOUR WEEK INJECTIONS, AND THE THE 10TH WOULD HAVE BEEN THE FIRST EIGHT WEEK
     Route: 058
  4. FASENRA [Suspect]
     Active Substance: BENRALIZUMAB
     Indication: EOSINOPHIL COUNT INCREASED
     Dosage: THREE FOUR WEEK INJECTIONS, AND THE THE 10TH WOULD HAVE BEEN THE FIRST EIGHT WEEK
     Route: 058
  5. ALBUTEROL. [Concomitant]
     Active Substance: ALBUTEROL

REACTIONS (12)
  - Suicidal ideation [Unknown]
  - Throat irritation [Unknown]
  - Memory impairment [Unknown]
  - Blood pressure increased [Unknown]
  - Weight increased [Unknown]
  - Depression [Unknown]
  - Sleep terror [Unknown]
  - Headache [Unknown]
  - Urticaria [Unknown]
  - Rash macular [Unknown]
  - Hypersomnia [Unknown]
  - Anxiety [Unknown]
